FAERS Safety Report 6664127-6 (Version None)
Quarter: 2010Q2

REPORT INFORMATION
  Report Type: 
  Country: None (occurrence: None)
  Receive Date: 20100401
  Receipt Date: 20100322
  Transmission Date: 20101027
  Serious: Yes (Hospitalization)
  Sender: FDA-Public Use
  Company Number: B0641965A

PATIENT
  Sex: Female

DRUGS (15)
  1. ALKERAN [Suspect]
     Indication: MULTIPLE MYELOMA
     Dosage: 8MG TWICE PER DAY
     Route: 048
     Dates: start: 20100304, end: 20100307
  2. THALIDOMIDE [Suspect]
     Indication: MULTIPLE MYELOMA
     Dosage: 50MG TWICE PER DAY
     Route: 048
     Dates: start: 20100304, end: 20100307
  3. PREDNISONE TAB [Suspect]
     Indication: MULTIPLE MYELOMA
     Dosage: 80MG TWICE PER DAY
     Route: 048
     Dates: start: 20100304, end: 20100307
  4. GINKOR [Concomitant]
     Route: 065
  5. PREVISCAN [Concomitant]
     Route: 065
  6. DIFFU K [Concomitant]
     Route: 065
  7. KERLONE [Concomitant]
     Route: 065
  8. VITAMIN A [Concomitant]
     Route: 065
  9. CELLUVISC [Concomitant]
     Route: 065
  10. LEVOTHYROX [Concomitant]
     Route: 065
  11. DAFALGAN [Concomitant]
     Route: 065
  12. NEXIUM [Concomitant]
     Route: 065
  13. BROMAZEPAM [Concomitant]
     Route: 065
  14. ALLOPURINOL [Concomitant]
     Route: 065
  15. HYDROCHLOROTHIAZIDE + OLMESARTAN MEDOXOMIL [Concomitant]

REACTIONS (4)
  - APHASIA [None]
  - CONFUSIONAL STATE [None]
  - VERTIGO [None]
  - VISUAL IMPAIRMENT [None]
